FAERS Safety Report 4609000-X (Version None)
Quarter: 2005Q1

REPORT INFORMATION
  Report Type: 
  Country: None (occurrence: None)
  Receive Date: 20050311
  Receipt Date: 20050223
  Transmission Date: 20050727
  Serious: Yes (Hospitalization)
  Sender: FDA-Public Use
  Company Number: 207211

PATIENT
  Age: 54 Year
  Sex: Female

DRUGS (5)
  1. AVONEX [Suspect]
     Indication: MULTIPLE SCLEROSIS
     Dosage: 30 UG; QW; IM
     Route: 030
     Dates: start: 20021220
  2. SYNTHROID [Concomitant]
  3. ALLEGRA [Concomitant]
  4. QVAR 40 [Concomitant]
  5. NEURONTIN [Concomitant]

REACTIONS (3)
  - HYPOAESTHESIA [None]
  - OVARIAN CANCER [None]
  - PARAESTHESIA [None]
